FAERS Safety Report 8811611 (Version 32)
Quarter: 2023Q1

REPORT INFORMATION
  Report Type: Report from Study
  Country: CA (occurrence: CA)
  Receive Date: 20120927
  Receipt Date: 20230306
  Transmission Date: 20230417
  Serious: Yes (Other)
  Sender: FDA-Public Use
  Company Number: PHHY2012CA078127

PATIENT
  Age: 56 Year
  Sex: Female

DRUGS (5)
  1. SANDOSTATIN LAR DEPOT [Suspect]
     Active Substance: OCTREOTIDE ACETATE
     Indication: Acromegaly
     Dosage: 20 MG, QMO (EVERY 4 WEEKS)
     Route: 030
     Dates: start: 20041020, end: 20220131
  2. SANDOSTATIN LAR DEPOT [Suspect]
     Active Substance: OCTREOTIDE ACETATE
     Dosage: 20 MG, QMO (EVERY 4 WEEKS)
     Route: 030
  3. SANDOSTATIN LAR DEPOT [Suspect]
     Active Substance: OCTREOTIDE ACETATE
     Dosage: 20 MG, EVERY 6 WEEKS
     Route: 030
     Dates: start: 20140304
  4. SANDOSTATIN LAR DEPOT [Suspect]
     Active Substance: OCTREOTIDE ACETATE
     Dosage: 20 MG, QMO (EVERY 4 WEEKS)
     Route: 030
     Dates: start: 20230201
  5. SOMAVERT [Concomitant]
     Active Substance: PEGVISOMANT
     Indication: Product used for unknown indication
     Dosage: UNK, QMO
     Route: 058

REACTIONS (28)
  - Cataract [Unknown]
  - Blood pressure decreased [Unknown]
  - Disturbance in attention [Unknown]
  - Hypophagia [Unknown]
  - Musculoskeletal chest pain [Unknown]
  - Memory impairment [Unknown]
  - Oropharyngeal pain [Unknown]
  - Ear pain [Unknown]
  - Fatigue [Unknown]
  - Hyperhidrosis [Unknown]
  - Vital functions abnormal [Unknown]
  - Feeling hot [Unknown]
  - Chest pain [Unknown]
  - Viral infection [Unknown]
  - Blood pressure increased [Unknown]
  - Conjunctivitis [Recovered/Resolved]
  - Amnesia [Unknown]
  - Malaise [Unknown]
  - Blood pressure systolic increased [Unknown]
  - Blood pressure diastolic increased [Unknown]
  - Asthenia [Unknown]
  - Heart rate decreased [Unknown]
  - Influenza like illness [Unknown]
  - Blood glucose decreased [Unknown]
  - Nausea [Unknown]
  - Headache [Unknown]
  - Urinary tract infection [Unknown]
  - Inappropriate schedule of product administration [Unknown]

NARRATIVE: CASE EVENT DATE: 20160301
